FAERS Safety Report 8860533 (Version 2)
Quarter: 2012Q4

REPORT INFORMATION
  Report Type: Report from Study
  Country: ES (occurrence: ES)
  Receive Date: 20121025
  Receipt Date: 20121115
  Transmission Date: 20130627
  Serious: Yes (Hospitalization)
  Sender: FDA-Public Use
  Company Number: ES-SANOFI-AVENTIS-2012SA076174

PATIENT
  Age: 66 Year
  Sex: Male
  Weight: 104 kg

DRUGS (2)
  1. CABAZITAXEL [Suspect]
     Indication: BLADDER CANCER
     Route: 042
     Dates: start: 20120703, end: 20120703
  2. CABAZITAXEL [Suspect]
     Indication: BLADDER CANCER
     Route: 042
     Dates: start: 20120821, end: 20120821

REACTIONS (1)
  - Oedema [Not Recovered/Not Resolved]
